FAERS Safety Report 8493802-6 (Version None)
Quarter: 2012Q3

REPORT INFORMATION
  Report Type: 
  Country: None (occurrence: None)
  Receive Date: 20120706
  Receipt Date: 20120627
  Transmission Date: 20120928
  Serious: Yes (Other)
  Sender: FDA-Public Use
  Company Number: GB-BAXTER-2012BAX006826

PATIENT
  Sex: Male

DRUGS (1)
  1. EXTRANEAL [Suspect]
     Route: 033
     Dates: start: 20120206, end: 20120516

REACTIONS (1)
  - NONINFECTIOUS PERITONITIS [None]
